FAERS Safety Report 6774822-6 (Version None)
Quarter: 2010Q2

REPORT INFORMATION
  Report Type: 
  Country: None (occurrence: None)
  Receive Date: 20100616
  Receipt Date: 20100616
  Transmission Date: 20101027
  Serious: No
  Sender: FDA-Public Use
  Company Number: None

PATIENT
  Age: 48 Year
  Sex: Female

DRUGS (1)
  1. MORPHINE [Suspect]
     Indication: PROCEDURAL PAIN
     Dosage: IV DRIP
     Route: 041
     Dates: start: 20100331, end: 20100401

REACTIONS (2)
  - RENAL IMPAIRMENT [None]
  - URINE OUTPUT DECREASED [None]
